FAERS Safety Report 17871646 (Version 4)
Quarter: 2021Q3

REPORT INFORMATION
  Report Type: Other
  Country: CA (occurrence: CA)
  Receive Date: 20200608
  Receipt Date: 20210819
  Transmission Date: 20211014
  Serious: Yes (Death, Hospitalization)
  Sender: FDA-Public Use
  Company Number: CA-ROCHE-2615875

PATIENT
  Age: 73 Year
  Sex: Female

DRUGS (9)
  1. XOLAIR [Suspect]
     Active Substance: OMALIZUMAB
     Route: 058
     Dates: start: 20051007
  2. XOLAIR [Suspect]
     Active Substance: OMALIZUMAB
     Route: 058
     Dates: start: 20051007
  3. XOLAIR [Suspect]
     Active Substance: OMALIZUMAB
     Indication: ASTHMA
     Route: 058
     Dates: start: 20051007
  4. XOLAIR [Suspect]
     Active Substance: OMALIZUMAB
     Route: 058
  5. XOLAIR [Suspect]
     Active Substance: OMALIZUMAB
     Route: 058
     Dates: start: 20051007
  6. XOLAIR [Suspect]
     Active Substance: OMALIZUMAB
     Route: 058
     Dates: start: 20051007
  7. XOLAIR [Suspect]
     Active Substance: OMALIZUMAB
     Route: 058
     Dates: start: 20060912
  8. XOLAIR [Suspect]
     Active Substance: OMALIZUMAB
     Route: 058
     Dates: start: 20051007
  9. XOLAIR [Suspect]
     Active Substance: OMALIZUMAB
     Route: 058
     Dates: start: 20051007

REACTIONS (19)
  - Asthma [Unknown]
  - Oropharyngeal discomfort [Unknown]
  - Haemorrhage [Unknown]
  - Haematoma [Unknown]
  - Weight decreased [Unknown]
  - Seasonal allergy [Unknown]
  - Wheezing [Unknown]
  - Skin plaque [Unknown]
  - Chest discomfort [Unknown]
  - Decreased appetite [Unknown]
  - Death [Fatal]
  - Cough [Unknown]
  - Diverticulitis [Unknown]
  - Pneumonia [Unknown]
  - Dyspnoea exertional [Not Recovered/Not Resolved]
  - Swelling [Unknown]
  - Sinus congestion [Unknown]
  - Haemorrhoids [Unknown]
  - Productive cough [Not Recovered/Not Resolved]

NARRATIVE: CASE EVENT DATE: 2015
